FAERS Safety Report 9432695 (Version 3)
Quarter: 2014Q4

REPORT INFORMATION
  Report Type: Spontaneous
  Country: US (occurrence: US)
  Receive Date: 20130731
  Receipt Date: 20141013
  Transmission Date: 20150529
  Serious: Yes (Death, Other)
  Sender: FDA-Public Use
  Company Number: US-009507513-1307USA016021

PATIENT
  Sex: Female
  Weight: 104.7 kg

DRUGS (1)
  1. NUVARING [Suspect]
     Active Substance: ETHINYL ESTRADIOL\ETONOGESTREL
     Indication: CONTRACEPTION
     Dosage: UNK
     Route: 067
     Dates: start: 20100712, end: 20110727

REACTIONS (10)
  - Chlamydial infection [Unknown]
  - Asthma [Unknown]
  - Anxiety disorder [Unknown]
  - Pulmonary embolism [Fatal]
  - Haemorrhage subcutaneous [Not Recovered/Not Resolved]
  - Cholelithiasis [Not Recovered/Not Resolved]
  - Anaemia [Unknown]
  - Cardio-respiratory arrest [Not Recovered/Not Resolved]
  - Deep vein thrombosis [Fatal]
  - Cervical dysplasia [Unknown]

NARRATIVE: CASE EVENT DATE: 20100723
